FAERS Safety Report 8830864 (Version 1)
Quarter: 2012Q4

REPORT INFORMATION
  Report Type: 
  Country: US (occurrence: US)
  Receive Date: 20121009
  Receipt Date: 20121009
  Transmission Date: 20130627
  Serious: Yes (Other)
  Sender: FDA-Public Use
  Company Number: US-PFIZER INC-2012246146

PATIENT
  Age: 50 Year
  Sex: Male

DRUGS (2)
  1. VFEND [Suspect]
     Indication: ASPERGILLOSIS
     Dosage: UNK
     Route: 042
     Dates: start: 2012
  2. CIPROFLOXACIN [Suspect]
     Dosage: UNK
     Dates: start: 201209

REACTIONS (6)
  - Coma [Unknown]
  - Syncope [Unknown]
  - Erythema [Unknown]
  - Fatigue [Unknown]
  - Epididymitis [Unknown]
  - Arthritis [Unknown]
